FAERS Safety Report 6229516-2 (Version None)
Quarter: 2009Q2

REPORT INFORMATION
  Report Type: 
  Country: None (occurrence: None)
  Receive Date: 20090615
  Receipt Date: 20090605
  Transmission Date: 20091009
  Serious: Yes (Congenital Anomaly)
  Sender: FDA-Public Use
  Company Number: A0789094B

PATIENT
  Sex: Male

DRUGS (1)
  1. WELLBUTRIN [Suspect]

REACTIONS (7)
  - AUTISM [None]
  - BICUSPID AORTIC VALVE [None]
  - BLOOD CHOLESTEROL INCREASED [None]
  - COARCTATION OF THE AORTA [None]
  - DRUG EXPOSURE DURING PREGNANCY [None]
  - HAEMANGIOMA [None]
  - OPTIC NERVE HYPOPLASIA [None]
